FAERS Safety Report 9523521 (Version 2)
Quarter: 2013Q3

REPORT INFORMATION
  Report Type: Spontaneous
  Country: US (occurrence: US)
  Receive Date: 20130913
  Receipt Date: 20130913
  Transmission Date: 20140515
  Serious: Yes (Hospitalization)
  Sender: FDA-Public Use
  Company Number: US-BAXTER-2013BAX035239

PATIENT
  Age: 51 Year
  Sex: Female

DRUGS (7)
  1. DIANEAL LOW CALCIUM (ULTRABAG) [Suspect]
     Indication: PERITONEAL DIALYSIS
     Route: 033
     Dates: start: 20120505
  2. COZAAR [Concomitant]
     Indication: HYPERTENSION
     Route: 048
  3. LABETALOL [Concomitant]
     Indication: HYPERTENSION
     Route: 048
  4. ADALAT CC [Concomitant]
     Indication: HYPERTENSION
     Route: 048
  5. ADALAT CC [Concomitant]
     Route: 048
  6. CATAPRES [Concomitant]
     Indication: HYPERTENSION
     Route: 048
  7. CATAPRES [Concomitant]
     Route: 048

REACTIONS (4)
  - Hypertension [Recovered/Resolved]
  - Aphasia [Recovered/Resolved]
  - Confusional state [Not Recovered/Not Resolved]
  - Paranoia [Not Recovered/Not Resolved]
